FAERS Safety Report 25736165 (Version 1)
Quarter: 2025Q3

REPORT INFORMATION
  Report Type: Spontaneous
  Country: US (occurrence: US)
  Receive Date: 20250828
  Receipt Date: 20250828
  Transmission Date: 20251021
  Serious: No
  Sender: SANOFI AVENTIS
  Company Number: US-SA-2025SA256021

PATIENT
  Age: 34 Year
  Sex: Male

DRUGS (1)
  1. DUPIXENT [Suspect]
     Active Substance: DUPILUMAB
     Indication: Dermatitis atopic
     Dosage: 300 MG, QOW
     Route: 058
     Dates: start: 202506

REACTIONS (6)
  - Periorbital swelling [Unknown]
  - Periorbital irritation [Unknown]
  - Periorbital disorder [Unknown]
  - Sleep disorder [Unknown]
  - Insomnia [Unknown]
  - Eye irritation [Unknown]

NARRATIVE: CASE EVENT DATE: 20250101
